FAERS Safety Report 25188173 (Version 2)
Quarter: 2025Q3

REPORT INFORMATION
  Report Type: Spontaneous
  Country: RS (occurrence: RS)
  Receive Date: 20250411
  Receipt Date: 20250809
  Transmission Date: 20251021
  Serious: Yes (Other)
  Sender: ALEXION PHARMACEUTICALS
  Company Number: RS-ASTRAZENECA-202412BKN004585RS

PATIENT
  Age: 58 Year
  Sex: Female

DRUGS (5)
  1. FASENRA [Suspect]
     Active Substance: BENRALIZUMAB
     Indication: Asthma
     Dosage: 30 MILLIGRAM, Q4W, FIRST THREE MONTHS
     Route: 065
     Dates: start: 20230221
  2. FASENRA [Suspect]
     Active Substance: BENRALIZUMAB
     Dosage: 30 MILLIGRAM, Q8W
     Route: 065
  3. SERTRALINE [Concomitant]
     Active Substance: SERTRALINE HYDROCHLORIDE
     Indication: Depression
     Dosage: 50 MILLIGRAM, QD
     Route: 065
  4. OXAZEPAM [Concomitant]
     Active Substance: OXAZEPAM
     Indication: Depression
     Dosage: 15 MILLIGRAM, BID (1/2)
     Route: 065
  5. TRAZODONE [Concomitant]
     Active Substance: TRAZODONE HYDROCHLORIDE
     Indication: Depression
     Route: 065

REACTIONS (14)
  - Loss of consciousness [Unknown]
  - Herpes simplex [Unknown]
  - Viral infection [Unknown]
  - Weight increased [Unknown]
  - Dyspnoea [Unknown]
  - Paraesthesia [Unknown]
  - Dysphonia [Unknown]
  - Gait disturbance [Unknown]
  - Spinal osteoarthritis [Unknown]
  - Asthenia [Unknown]
  - Rhinitis [Unknown]
  - Respiratory tract infection [Unknown]
  - Cervicobrachial syndrome [Unknown]
  - Intervertebral disc disorder [Unknown]
